FAERS Safety Report 4286332-9 (Version None)
Quarter: 2004Q1

REPORT INFORMATION
  Report Type: 
  Country: None (occurrence: None)
  Receive Date: 20040121
  Receipt Date: 20030714
  Transmission Date: 20041129
  Serious: Yes (Other)
  Sender: FDA-Public Use
  Company Number: A03200301564

PATIENT
  Age: 85 Year
  Sex: Female
  Weight: 58.9676 kg

DRUGS (6)
  1. PLAVIX [Suspect]
     Indication: ANTICOAGULANT THERAPY
     Dosage: 75 MG QD - ORAL
     Route: 048
     Dates: start: 20030401, end: 20030712
  2. ASPIRIN ^BAYER^ - ACETYLSALICYLIC ACID - TABLET - 81 MG [Suspect]
     Dosage: 81 MG QD - ORAL
     Route: 048
     Dates: start: 20030101, end: 20030701
  3. FUROSEMIDE [Concomitant]
  4. METOPROLOL TARTRATE [Concomitant]
  5. POTASSIUM CHLORIDE [Concomitant]
  6. ALPRAZOLAM [Concomitant]

REACTIONS (1)
  - MELAENA [None]
